FAERS Safety Report 5219112-8 (Version None)
Quarter: 2007Q1

REPORT INFORMATION
  Report Type: 
  Country: None (occurrence: None)
  Receive Date: 20070123
  Receipt Date: 20070102
  Transmission Date: 20070707
  Serious: Yes (Hospitalization)
  Sender: FDA-Public Use
  Company Number: VNL_0362_2007

PATIENT
  Age: 75 Year
  Sex: Female
  Weight: 83.9154 kg

DRUGS (14)
  1. APOKYN [Suspect]
     Indication: PARKINSON'S DISEASE
     Dosage: SEE IMAGE
     Route: 058
     Dates: start: 20060927, end: 20060101
  2. APOKYN [Suspect]
     Indication: PARKINSON'S DISEASE
     Dosage: SEE IMAGE
     Route: 058
     Dates: start: 20060101
  3. MACRODANTIN [Concomitant]
  4. SINEMET [Concomitant]
  5. MIRAPEX [Concomitant]
  6. NEURONTIN [Concomitant]
  7. PRAVACHOL [Concomitant]
  8. GLIPIZIDE [Concomitant]
  9. ATENOLOL [Concomitant]
  10. METFORMIN HCL [Concomitant]
  11. ISORBIDE [Concomitant]
  12. DIOVAN [Concomitant]
  13. BETHANECHOL [Concomitant]
  14. TIGAN [Concomitant]

REACTIONS (5)
  - DIABETIC NEUROPATHY [None]
  - DYSSTASIA [None]
  - MOVEMENT DISORDER [None]
  - SENSORY DISTURBANCE [None]
  - SPINAL CORD COMPRESSION [None]
